FAERS Safety Report 9396139 (Version 1)
Quarter: 2013Q3

REPORT INFORMATION
  Report Type: Spontaneous
  Country: US (occurrence: US)
  Receive Date: 20130711
  Receipt Date: 20130711
  Transmission Date: 20140515
  Serious: No
  Sender: FDA-Public Use
  Company Number: US-009507513-1306USA013027

PATIENT
  Age: 62 Year
  Sex: Female

DRUGS (1)
  1. PROVENTIL [Suspect]
     Indication: ASTHMA
     Dosage: 1 OR 2 DOSES A DAY OR PRN
     Route: 055

REACTIONS (3)
  - Cough [Recovering/Resolving]
  - Dysphonia [Recovering/Resolving]
  - Product container issue [Unknown]
